FAERS Safety Report 21099321 (Version 1)
Quarter: 2022Q3

REPORT INFORMATION
  Report Type: Spontaneous
  Country: CN (occurrence: CN)
  Receive Date: 20220719
  Receipt Date: 20220719
  Transmission Date: 20221027
  Serious: Yes (Other)
  Sender: FDA-Public Use
  Company Number: CN-GALDERMA-CN2022009329

PATIENT

DRUGS (1)
  1. BENZOYL PEROXIDE [Suspect]
     Active Substance: BENZOYL PEROXIDE
     Indication: Acne
     Dosage: 1 DOSAGE FORM, BID
     Route: 061
     Dates: start: 20220118, end: 20220121

REACTIONS (6)
  - Swelling face [Recovering/Resolving]
  - Rash erythematous [Recovering/Resolving]
  - Pruritus [Recovering/Resolving]
  - Paraesthesia [Recovering/Resolving]
  - Hypersensitivity [Recovering/Resolving]
  - Acne [Unknown]

NARRATIVE: CASE EVENT DATE: 20220101
